FAERS Safety Report 8714811 (Version 4)
Quarter: 2012Q4

REPORT INFORMATION
  Report Type: 
  Country: CA (occurrence: CA)
  Receive Date: 20120809
  Receipt Date: 20121226
  Transmission Date: 20130627
  Serious: Yes (Other)
  Sender: FDA-Public Use
  Company Number: CA-JNJFOC-20120800721

PATIENT
  Age: 3 Year
  Sex: Male

DRUGS (2)
  1. RISPERDAL [Suspect]
     Indication: INSOMNIA
     Route: 048
     Dates: start: 201203
  2. RISPERDAL [Suspect]
     Indication: INSOMNIA
     Route: 048
     Dates: start: 20121212

REACTIONS (6)
  - Aggression [Recovering/Resolving]
  - Adverse event [Unknown]
  - Agitation [Unknown]
  - Fall [Unknown]
  - Abnormal behaviour [Unknown]
  - Regressive behaviour [Unknown]
